FAERS Safety Report 8108840-2 (Version None)
Quarter: 2012Q1

REPORT INFORMATION
  Report Type: 
  Country: None (occurrence: None)
  Receive Date: 20120202
  Receipt Date: 20120117
  Transmission Date: 20120608
  Serious: No
  Sender: FDA-Public Use
  Company Number: US-AMGEN-USASP2012003337

PATIENT
  Age: 69 Year
  Sex: Male

DRUGS (1)
  1. ENBREL [Suspect]
     Indication: RHEUMATOID ARTHRITIS
     Dosage: 50 MG, Q2WK
     Dates: start: 20060402, end: 20111226

REACTIONS (4)
  - RESPIRATORY TRACT CONGESTION [None]
  - OROPHARYNGEAL PAIN [None]
  - RHINORRHOEA [None]
  - COUGH [None]
